FAERS Safety Report 9862534 (Version 1)
Quarter: 2014Q1

REPORT INFORMATION
  Report Type: Spontaneous
  Country: US (occurrence: US)
  Receive Date: 20140203
  Receipt Date: 20140203
  Transmission Date: 20141002
  Serious: No
  Sender: FDA-Public Use
  Company Number: US-TEVA-459973USA

PATIENT
  Age: 26 Year
  Sex: Female
  Weight: 71.73 kg

DRUGS (4)
  1. PARAGARD 380A [Suspect]
     Indication: CONTRACEPTION
     Route: 015
     Dates: start: 201306
  2. ALBUTEROL [Concomitant]
     Indication: ASTHMA
  3. SINGULAIR [Concomitant]
     Indication: ASTHMA
     Route: 048
  4. SINGULAIR [Concomitant]
     Indication: HYPERSENSITIVITY

REACTIONS (2)
  - Pelvic pain [Not Recovered/Not Resolved]
  - Menstruation delayed [Not Recovered/Not Resolved]
